FAERS Safety Report 9140198 (Version 1)
Quarter: 2013Q1

REPORT INFORMATION
  Report Type: Spontaneous
  Country: FR (occurrence: FR)
  Receive Date: 20130305
  Receipt Date: 20130305
  Transmission Date: 20140127
  Serious: Yes (Death)
  Sender: FDA-Public Use
  Company Number: FR-ASTRAZENECA-2013SE14146

PATIENT
  Sex: Female

DRUGS (6)
  1. MOPRAL [Suspect]
     Indication: PROPHYLAXIS AGAINST GASTROINTESTINAL ULCER
     Route: 048
  2. CELLCEPT [Concomitant]
  3. PROGRAFF [Concomitant]
  4. KARDEGIC [Concomitant]
  5. SOLUPRED [Concomitant]
  6. GELOX [Concomitant]

REACTIONS (5)
  - Gastrointestinal haemorrhage [Fatal]
  - Ulcer [Fatal]
  - Cardiac arrest [Fatal]
  - Haematemesis [Fatal]
  - Drug dose omission [Fatal]
